FAERS Safety Report 12850611 (Version 1)
Quarter: 2016Q4

REPORT INFORMATION
  Report Type: Spontaneous
  Country: DK (occurrence: DK)
  Receive Date: 20161014
  Receipt Date: 20161014
  Transmission Date: 20170207
  Serious: Yes (Hospitalization)
  Sender: FDA-Public Use
  Company Number: DK-SA-2016SA186569

PATIENT
  Sex: Female

DRUGS (3)
  1. TAXOTERE [Suspect]
     Active Substance: DOCETAXEL
     Indication: INFLAMMATORY CARCINOMA OF THE BREAST
     Route: 065
     Dates: start: 20090514
  2. NEULASTA [Concomitant]
     Active Substance: PEGFILGRASTIM
     Indication: INFLAMMATORY CARCINOMA OF THE BREAST
     Route: 065
     Dates: start: 20090514
  3. FEMAR [Concomitant]
     Active Substance: LETROZOLE
     Route: 065

REACTIONS (19)
  - Coordination abnormal [Unknown]
  - Limb discomfort [Unknown]
  - Optic nerve injury [Unknown]
  - Paraesthesia [Unknown]
  - Sensory disturbance [Unknown]
  - Neuralgia [Unknown]
  - Oedema peripheral [Unknown]
  - Pain in extremity [Unknown]
  - Headache [Unknown]
  - Lymphoedema [Unknown]
  - Chest pain [Unknown]
  - Arthralgia [Unknown]
  - Muscular weakness [Unknown]
  - Decreased activity [Unknown]
  - Pain in extremity [Unknown]
  - Musculoskeletal pain [Unknown]
  - Photophobia [Unknown]
  - Disturbance in attention [Unknown]
  - Reading disorder [Unknown]

NARRATIVE: CASE EVENT DATE: 20100215
